FAERS Safety Report 13595499 (Version 1)
Quarter: 2017Q2

REPORT INFORMATION
  Report Type: Spontaneous
  Country: US (occurrence: US)
  Receive Date: 20170531
  Receipt Date: 20170531
  Transmission Date: 20170830
  Serious: No
  Sender: FDA-Public Use
  Company Number: US-JNJFOC-20170305054

PATIENT
  Age: 8 Year
  Sex: Male
  Weight: 25.4 kg

DRUGS (3)
  1. CHILDRENS MOTRIN [Suspect]
     Active Substance: IBUPROFEN
     Route: 048
  2. IBUPROFEN. [Suspect]
     Active Substance: IBUPROFEN
     Indication: WRIST FRACTURE
     Dosage: IN MORNING
     Route: 065
     Dates: start: 20170224, end: 20170301
  3. CHILDRENS MOTRIN [Suspect]
     Active Substance: IBUPROFEN
     Indication: WRIST FRACTURE
     Dosage: AT NIGHT
     Route: 048
     Dates: start: 20170224, end: 20170301

REACTIONS (4)
  - Product use in unapproved indication [Recovered/Resolved]
  - Headache [Recovered/Resolved]
  - Malaise [Recovered/Resolved]
  - Off label use [Recovered/Resolved]

NARRATIVE: CASE EVENT DATE: 20170224
